FAERS Safety Report 22010974 (Version 1)
Quarter: 2023Q1

REPORT INFORMATION
  Report Type: Spontaneous
  Country: US (occurrence: US)
  Receive Date: 20230220
  Receipt Date: 20230220
  Transmission Date: 20230417
  Serious: Yes (Other)
  Sender: FDA-Public Use
  Company Number: US-MYLANLABS-2023M1017650

PATIENT
  Age: 42 Year
  Sex: Female

DRUGS (5)
  1. ESCITALOPRAM [Suspect]
     Active Substance: ESCITALOPRAM OXALATE
     Indication: Depression
     Dosage: UNK
     Route: 065
  2. ESCITALOPRAM [Suspect]
     Active Substance: ESCITALOPRAM OXALATE
     Indication: Anxiety
  3. LOPERAMIDE [Suspect]
     Active Substance: LOPERAMIDE
     Indication: Frequent bowel movements
     Dosage: UNK
     Route: 065
  4. LOPERAMIDE [Suspect]
     Active Substance: LOPERAMIDE
     Indication: Diarrhoea
  5. LOPERAMIDE [Suspect]
     Active Substance: LOPERAMIDE
     Indication: Anal incontinence

REACTIONS (3)
  - Colitis microscopic [Recovering/Resolving]
  - Drug ineffective [Unknown]
  - Vitiligo [Unknown]
